FAERS Safety Report 7202209-0 (Version None)
Quarter: 2010Q4

REPORT INFORMATION
  Report Type: 
  Country: None (occurrence: None)
  Receive Date: 20101229
  Receipt Date: 20101217
  Transmission Date: 20110411
  Serious: Yes (Other)
  Sender: FDA-Public Use
  Company Number: US-PFIZER INC-2010174812

PATIENT
  Sex: Female
  Weight: 79.8 kg

DRUGS (5)
  1. PRISTIQ [Suspect]
     Indication: DEPRESSION
     Dosage: 50 MG, 1X/DAY
     Route: 048
     Dates: start: 20101201
  2. KLONOPIN [Concomitant]
     Indication: PANIC DISORDER
     Dosage: 1 MG, 3X/DAY
  3. KLONOPIN [Concomitant]
     Indication: ANXIETY
  4. KLONOPIN [Concomitant]
     Indication: INSOMNIA
  5. HYDROCODONE [Concomitant]
     Indication: BACK PAIN
     Dosage: 10/500 MG FOUR TIMES A DAY

REACTIONS (3)
  - FLUID RETENTION [None]
  - HYPOAESTHESIA [None]
  - WEIGHT INCREASED [None]
